FAERS Safety Report 23569694 (Version 1)
Quarter: 2024Q1

REPORT INFORMATION
  Report Type: Spontaneous
  Country: FR (occurrence: FR)
  Receive Date: 20240227
  Receipt Date: 20240227
  Transmission Date: 20240410
  Serious: Yes (Death)
  Sender: FDA-Public Use
  Company Number: None

PATIENT
  Age: 45 Year
  Sex: Male

DRUGS (3)
  1. NORVIR [Interacting]
     Active Substance: RITONAVIR
     Indication: HIV infection
     Dosage: 100 MG, COATED TABLET?2 CP /JOUR?1FP
     Route: 048
     Dates: start: 20160928
  2. BISOPROLOL [Interacting]
     Active Substance: BISOPROLOL\BISOPROLOL FUMARATE
     Indication: Hypertension
     Dosage: 5MG /J?1FP
     Route: 048
     Dates: start: 20210215
  3. PREZISTA [Interacting]
     Active Substance: DARUNAVIR ETHANOLATE
     Indication: HIV infection
     Dosage: 2 CP/JOUR?1FP
     Route: 048
     Dates: start: 20160928

REACTIONS (1)
  - Ventricular tachycardia [Fatal]

NARRATIVE: CASE EVENT DATE: 20240205
